FAERS Safety Report 7468823-2 (Version None)
Quarter: 2011Q2

REPORT INFORMATION
  Report Type: 
  Country: None (occurrence: None)
  Receive Date: 20110510
  Receipt Date: 20110502
  Transmission Date: 20111010
  Serious: No
  Sender: FDA-Public Use
  Company Number: US-BIOGENIDEC-2011BI016553

PATIENT
  Age: 62 Year
  Sex: Female

DRUGS (1)
  1. TYSABRI [Suspect]
     Indication: MULTIPLE SCLEROSIS
     Route: 042
     Dates: start: 20100610

REACTIONS (10)
  - GASTRIC PERFORATION [None]
  - GINGIVAL RECESSION [None]
  - BRONCHITIS [None]
  - VOMITING [None]
  - ASTHENIA [None]
  - URINARY TRACT INFECTION [None]
  - PAIN [None]
  - CONFUSIONAL STATE [None]
  - DENTAL CARIES [None]
  - TOOTH DISORDER [None]
